FAERS Safety Report 11001859 (Version 2)
Quarter: 2015Q2

REPORT INFORMATION
  Report Type: Spontaneous
  Country: IL (occurrence: IL)
  Receive Date: 20150408
  Receipt Date: 20150410
  Transmission Date: 20150821
  Serious: Yes (Other)
  Sender: FDA-Public Use
  Company Number: IL-MUNDIPHARMA DS AND PHARMACOVIGILANCE-GBR-2015-0026594

PATIENT
  Age: 47 Year
  Sex: Male

DRUGS (6)
  1. OXYCOD                             /00045603/ [Suspect]
     Active Substance: OXYCODONE HYDROCHLORIDE
     Indication: NEURALGIA
     Dosage: 14 MG, BID
     Route: 048
  2. CANNABIS [Concomitant]
     Active Substance: CANNABIS SATIVA SUBSP. INDICA TOP
     Indication: NEURALGIA
     Dosage: UNK
     Route: 055
  3. CLONAZEPAM. [Suspect]
     Active Substance: CLONAZEPAM
     Indication: PRODUCT USED FOR UNKNOWN INDICATION
     Route: 065
  4. LYRICA [Concomitant]
     Active Substance: PREGABALIN
     Indication: NEURALGIA
     Route: 048
  5. BUTRANS [Suspect]
     Active Substance: BUPRENORPHINE
     Indication: NEURALGIA
     Dosage: 40 MCG, Q1H
     Route: 062
  6. FENTANYL. [Suspect]
     Active Substance: FENTANYL
     Indication: NEURALGIA
     Dosage: 50 MCG, Q1H
     Route: 062

REACTIONS (5)
  - Substance use [Unknown]
  - Nausea [Unknown]
  - Depressed mood [Unknown]
  - Irritability [Unknown]
  - Wrong technique in drug usage process [Unknown]
